FAERS Safety Report 23181497 (Version 1)
Quarter: 2023Q4

REPORT INFORMATION
  Report Type: Spontaneous
  Country: US (occurrence: None)
  Receive Date: 20231113
  Receipt Date: 20231113
  Transmission Date: 20240109
  Serious: Yes (Other)
  Sender: FDA-Public Use
  Company Number: None

PATIENT
  Age: 57 Year
  Sex: Female
  Weight: 59.4 kg

DRUGS (6)
  1. JEUVEAU [Suspect]
     Active Substance: PRABOTULINUMTOXINA-XVFS
     Indication: Skin wrinkling
     Route: 030
     Dates: start: 20231110
  2. PROGESTERONE [Concomitant]
     Active Substance: PROGESTERONE
  3. COLLAGEN [Concomitant]
     Active Substance: COLLAGEN
  4. VITAMIN C [Concomitant]
     Active Substance: ASCORBIC ACID
  5. VITAMIN D3 [Concomitant]
     Active Substance: CHOLECALCIFEROL
  6. JWH-018 [Concomitant]
     Active Substance: JWH-018

REACTIONS (1)
  - Pneumonia [None]

NARRATIVE: CASE EVENT DATE: 20231110
